FAERS Safety Report 9294723 (Version 1)
Quarter: 2013Q1

REPORT INFORMATION
  Report Type: Spontaneous
  Country: US (occurrence: None)
  Receive Date: 20121214
  Receipt Date: 20121214
  Transmission Date: 20140127
  Serious: Yes (Hospitalization)
  Sender: FDA-Public Use
  Company Number: 1205USA04805

PATIENT
  Age: 65 Year
  Sex: Male
  Weight: 116.6 kg

DRUGS (5)
  1. JANUVIA (SITAGLIPTIN PHOSPHATE) FILM-COATED TABLET [Suspect]
     Indication: TYPE 2 DIABETES MELLITUS
     Route: 048
     Dates: start: 20120423, end: 20120517
  2. MK-9378 (METFORMIN) [Concomitant]
  3. INSULIN (INSULIN) [Concomitant]
  4. GLYBURIDE (GLYBURIDE) [Concomitant]
  5. HUMULIN (INSULIN HUMAN) [Concomitant]

REACTIONS (1)
  - Pancreatitis [None]
